FAERS Safety Report 5372731-0 (Version None)
Quarter: 2007Q2

REPORT INFORMATION
  Report Type: 
  Country: None (occurrence: None)
  Receive Date: 20070619
  Receipt Date: 20061227
  Transmission Date: 20071010
  Serious: Yes (Hospitalization)
  Sender: FDA-Public Use
  Company Number: WAES 0612USA04052

PATIENT
  Sex: Male

DRUGS (1)
  1. TAB COZAAR UNK [Suspect]

REACTIONS (2)
  - CHEST PAIN [None]
  - DYSPNOEA [None]
